FAERS Safety Report 21443552 (Version 4)
Quarter: 2023Q4

REPORT INFORMATION
  Report Type: Report from Study
  Country: JP (occurrence: JP)
  Receive Date: 20221012
  Receipt Date: 20231016
  Transmission Date: 20240110
  Serious: Yes (Other)
  Sender: FDA-Public Use
  Company Number: JP-JNJFOC-20191240030

PATIENT
  Age: 60 Year
  Sex: Male

DRUGS (11)
  1. PREZCOBIX [Suspect]
     Active Substance: COBICISTAT\DARUNAVIR ETHANOLATE
     Indication: HIV infection
     Route: 048
     Dates: start: 20170724, end: 20191211
  2. DESCOVY [Suspect]
     Active Substance: EMTRICITABINE\TENOFOVIR ALAFENAMIDE FUMARATE
     Indication: HIV infection
     Route: 048
     Dates: start: 20170724, end: 20191211
  3. DESCOVY [Suspect]
     Active Substance: EMTRICITABINE\TENOFOVIR ALAFENAMIDE FUMARATE
     Route: 048
     Dates: start: 20201203
  4. PIFELTRO [Suspect]
     Active Substance: DORAVIRINE
     Indication: HIV infection
     Route: 048
     Dates: start: 20201203
  5. COBICISTAT\DARUNAVIR\EMTRICITABINE\TENOFOVIR ALAFENAMIDE [Concomitant]
     Active Substance: COBICISTAT\DARUNAVIR\EMTRICITABINE\TENOFOVIR ALAFENAMIDE
     Indication: HIV infection
     Route: 048
     Dates: start: 20191212, end: 20201203
  6. CORTRIL [Concomitant]
     Active Substance: HYDROCORTISONE
     Indication: Product used for unknown indication
     Dosage: UNKNOWN
     Route: 065
     Dates: start: 20171201
  7. MICARDIS [Concomitant]
     Active Substance: TELMISARTAN
     Indication: Product used for unknown indication
     Dosage: UNKNOWN
     Route: 048
     Dates: start: 20180112
  8. METGLUCO [Concomitant]
     Active Substance: METFORMIN HYDROCHLORIDE
     Indication: Diabetes mellitus
     Dosage: UNKNOWN
     Route: 048
     Dates: start: 20180626
  9. PEMAFIBRATE [Concomitant]
     Active Substance: PEMAFIBRATE
     Indication: Product used for unknown indication
     Dosage: DOSE UNKNOWN
     Route: 048
     Dates: start: 20191010, end: 20230102
  10. JANUVIA [Concomitant]
     Active Substance: SITAGLIPTIN PHOSPHATE
     Indication: Diabetes mellitus
     Dosage: DOSE UNKNOWN
     Route: 048
     Dates: start: 20201001, end: 20211129
  11. PITAVASTATIN CALCIUM [Concomitant]
     Active Substance: PITAVASTATIN CALCIUM
     Dosage: DOSE UNKNOWN
     Route: 048
     Dates: start: 20230102

REACTIONS (1)
  - Diabetes mellitus [Recovering/Resolving]

NARRATIVE: CASE EVENT DATE: 20180216
